FAERS Safety Report 8934261 (Version 1)
Quarter: 2012Q4

REPORT INFORMATION
  Report Type: 
  Country: BR (occurrence: BR)
  Receive Date: 20121129
  Receipt Date: 20121129
  Transmission Date: 20130627
  Serious: Yes (Other)
  Sender: FDA-Public Use
  Company Number: PHHY2012BR109333

PATIENT
  Age: 86 Year
  Sex: Female

DRUGS (3)
  1. ACLASTA [Suspect]
     Indication: OSTEOPOROSIS
     Dosage: UNK
     Route: 042
     Dates: start: 20081126
  2. ACLASTA [Suspect]
     Dosage: UNK
     Route: 042
     Dates: start: 201010
  3. ACLASTA [Suspect]
     Dosage: UNK
     Route: 042
     Dates: start: 201108

REACTIONS (2)
  - Fall [Unknown]
  - Spinal compression fracture [Unknown]
